FAERS Safety Report 7225231-7 (Version None)
Quarter: 2011Q1

REPORT INFORMATION
  Report Type: 
  Country: None (occurrence: None)
  Receive Date: 20110113
  Receipt Date: 20110103
  Transmission Date: 20110831
  Serious: Yes (Congenital Anomaly)
  Sender: FDA-Public Use
  Company Number: A0905452A

PATIENT
  Sex: Female

DRUGS (3)
  1. LOMOTIL [Concomitant]
  2. PAROXETINE HYDROCHLORIDE [Suspect]
  3. FOLATE [Concomitant]

REACTIONS (2)
  - DRUG EXPOSURE DURING PREGNANCY [None]
  - ATRIAL SEPTAL DEFECT [None]
